FAERS Safety Report 10580031 (Version 3)
Quarter: 2014Q4

REPORT INFORMATION
  Report Type: Spontaneous
  Country: US (occurrence: US)
  Receive Date: 20141112
  Receipt Date: 20141218
  Transmission Date: 20150529
  Serious: Yes (Other)
  Sender: FDA-Public Use
  Company Number: US-PFIZER INC-2014309891

PATIENT
  Sex: Female

DRUGS (3)
  1. NARDIL [Suspect]
     Active Substance: PHENELZINE SULFATE
     Dosage: 5 DF, DAILY
  2. NARDIL [Suspect]
     Active Substance: PHENELZINE SULFATE
     Dosage: 4 DF, DAILY
  3. NARDIL [Suspect]
     Active Substance: PHENELZINE SULFATE
     Dosage: 3 DF, DAILY

REACTIONS (2)
  - Thyroid cancer [Unknown]
  - Depressed mood [Unknown]
